FAERS Safety Report 12310042 (Version 1)
Quarter: 2016Q2

REPORT INFORMATION
  Report Type: Spontaneous
  Country: US (occurrence: US)
  Receive Date: 20160427
  Receipt Date: 20160427
  Transmission Date: 20160815
  Serious: No
  Sender: FDA-Public Use
  Company Number: US-GLAXOSMITHKLINE-US2016055420

PATIENT
  Sex: Male

DRUGS (2)
  1. VOLTAREN [Suspect]
     Active Substance: DICLOFENAC SODIUM
     Indication: ARTHROPATHY
     Dosage: UNK UNK, U
     Route: 061
  2. VOLTAREN [Suspect]
     Active Substance: DICLOFENAC SODIUM
     Indication: ARTHROPATHY

REACTIONS (2)
  - Drug administered at inappropriate site [Unknown]
  - Product use issue [Unknown]
